FAERS Safety Report 14302501 (Version 1)
Quarter: 2017Q4

REPORT INFORMATION
  Report Type: Spontaneous
  Country: FR (occurrence: FR)
  Receive Date: 20171219
  Receipt Date: 20171219
  Transmission Date: 20180321
  Serious: Yes (Life-Threatening)
  Sender: FDA-Public Use
  Company Number: FR-AUROBINDO-AUR-APL-2017-45880

PATIENT
  Age: 28 Year
  Sex: Male

DRUGS (10)
  1. VALACICLOVIR [Suspect]
     Active Substance: VALACYCLOVIR HYDROCHLORIDE
     Indication: ERYTHEMA MULTIFORME
  2. DAPSONE. [Concomitant]
     Active Substance: DAPSONE
     Indication: ERYTHEMA MULTIFORME
     Dosage: UNK ()
  3. COLCHICINE. [Concomitant]
     Active Substance: COLCHICINE
     Indication: ERYTHEMA MULTIFORME
     Dosage: UNK ()
  4. CICLOSPORINE [Concomitant]
     Active Substance: CYCLOSPORINE
     Indication: ERYTHEMA MULTIFORME
     Dosage: UNK ()
  5. PENTOXYPHYLLINE [Concomitant]
     Indication: ERYTHEMA MULTIFORME
     Dosage: UNK ()
  6. PREDNISONE. [Concomitant]
     Active Substance: PREDNISONE
     Indication: DERMATITIS
  7. AZATHIOPRINE. [Concomitant]
     Active Substance: AZATHIOPRINE
     Indication: ERYTHEMA MULTIFORME
     Dosage: UNK ()
  8. THALIDOMIDE [Concomitant]
     Active Substance: THALIDOMIDE
     Indication: ERYTHEMA MULTIFORME
     Dosage: UNK ()
  9. VALACICLOVIR [Suspect]
     Active Substance: VALACYCLOVIR HYDROCHLORIDE
     Indication: ANTIVIRAL TREATMENT
     Dosage: UNK ()
  10. PREDNISONE. [Concomitant]
     Active Substance: PREDNISONE
     Indication: ERYTHEMA MULTIFORME
     Dosage: 150 MG, UNK

REACTIONS (1)
  - Treatment failure [Unknown]
